FAERS Safety Report 18390080 (Version 5)
Quarter: 2020Q4

REPORT INFORMATION
  Report Type: Spontaneous
  Country: IT (occurrence: IT)
  Receive Date: 20201015
  Receipt Date: 20201222
  Transmission Date: 20210114
  Serious: Yes (Hospitalization, Other)
  Sender: FDA-Public Use
  Company Number: NVSC2020IT275722

PATIENT
  Age: 27 Year
  Sex: Male

DRUGS (13)
  1. HYDROXYCHLOROQUINE [Suspect]
     Active Substance: HYDROXYCHLOROQUINE
     Indication: COVID-19
     Dosage: UNK
     Route: 065
     Dates: start: 20200326
  2. TACROLIMUS. [Interacting]
     Active Substance: TACROLIMUS
     Indication: IMMUNOSUPPRESSANT DRUG THERAPY
     Dosage: 4 MG, QD
     Route: 065
     Dates: start: 201907, end: 20200327
  3. DARUNAVIR [Interacting]
     Active Substance: DARUNAVIR
     Indication: COVID-19
     Dosage: UNK
     Route: 065
     Dates: start: 20200326, end: 20200403
  4. TACROLIMUS. [Interacting]
     Active Substance: TACROLIMUS
     Dosage: 1 MG, BID
     Route: 065
     Dates: start: 202003, end: 202003
  5. TACROLIMUS. [Interacting]
     Active Substance: TACROLIMUS
     Dosage: 4 MG, QD
     Route: 065
     Dates: start: 20200406
  6. PREDNISONE. [Suspect]
     Active Substance: PREDNISONE
     Indication: IMMUNOSUPPRESSANT DRUG THERAPY
     Dosage: UNK
     Route: 065
     Dates: start: 201907
  7. RITONAVIR. [Interacting]
     Active Substance: RITONAVIR
     Indication: COVID-19
     Dosage: UNK
     Route: 048
     Dates: start: 20200326, end: 20200403
  8. TACROLIMUS. [Interacting]
     Active Substance: TACROLIMUS
     Dosage: 4 MG, BID
     Route: 065
     Dates: end: 202003
  9. TACROLIMUS. [Interacting]
     Active Substance: TACROLIMUS
     Dosage: 1 MG, QD
     Route: 065
     Dates: start: 20200326, end: 20200327
  10. TACROLIMUS. [Interacting]
     Active Substance: TACROLIMUS
     Dosage: UNK UNK, BID
     Route: 065
     Dates: start: 20200406
  11. TACROLIMUS. [Interacting]
     Active Substance: TACROLIMUS
     Indication: LIVER TRANSPLANT
     Dosage: REDUCED FROM 4 MG TO 1 MG PER DAY
     Route: 065
     Dates: start: 201804, end: 20200326
  12. PREDNISONE. [Suspect]
     Active Substance: PREDNISONE
     Indication: LIVER TRANSPLANT
     Dosage: UNK
     Route: 065
     Dates: start: 201804
  13. TACROLIMUS. [Interacting]
     Active Substance: TACROLIMUS
     Dosage: 1 MG, QD
     Route: 065
     Dates: start: 20200320, end: 202003

REACTIONS (10)
  - Anosmia [Recovered/Resolved]
  - Ageusia [Recovered/Resolved]
  - Drug interaction [Recovered/Resolved]
  - Therapeutic response unexpected [Unknown]
  - COVID-19 [Recovered/Resolved]
  - Acute kidney injury [Recovered/Resolved]
  - Pyrexia [Recovered/Resolved]
  - Immunosuppressant drug level increased [Recovered/Resolved]
  - Toxicity to various agents [Recovered/Resolved]
  - Off label use [Unknown]

NARRATIVE: CASE EVENT DATE: 2020
